FAERS Safety Report 17899049 (Version 1)
Quarter: 2020Q2

REPORT INFORMATION
  Report Type: Report from Study
  Country: US (occurrence: US)
  Receive Date: 20200616
  Receipt Date: 20200616
  Transmission Date: 20200714
  Serious: Yes (Hospitalization)
  Sender: FDA-Public Use
  Company Number: US-AMGEN-USASL2020093795

PATIENT
  Age: 40 Year
  Sex: Female

DRUGS (1)
  1. REPATHA [Suspect]
     Active Substance: EVOLOCUMAB
     Indication: HYPERCHOLESTEROLAEMIA
     Dosage: 420 MILLIGRAM/3.5ML , QMO
     Route: 065

REACTIONS (5)
  - Injection site pain [Unknown]
  - Dyspnoea [Unknown]
  - Malaise [Unknown]
  - Injection site bruising [Unknown]
  - Presyncope [Unknown]

NARRATIVE: CASE EVENT DATE: 202001
